FAERS Safety Report 6335144-0 (Version None)
Quarter: 2009Q3

REPORT INFORMATION
  Report Type: 
  Country: None (occurrence: None)
  Receive Date: 20090828
  Receipt Date: 20090828
  Transmission Date: 20100115
  Serious: Yes (Life-Threatening, Disabling)
  Sender: FDA-Public Use
  Company Number: None

PATIENT
  Sex: Male
  Weight: 104.3273 kg

DRUGS (1)
  1. DILTIAZEM [Suspect]
     Indication: ATRIAL FIBRILLATION
     Dosage: 240 MG CAPSULES 1 PER DAY BY MOUTH
     Route: 048
     Dates: start: 20020801, end: 20081101

REACTIONS (1)
  - PERIODONTAL DISEASE [None]
